FAERS Safety Report 5533394-4 (Version None)
Quarter: 2007Q4

REPORT INFORMATION
  Report Type: 
  Country: None (occurrence: None)
  Receive Date: 20071204
  Receipt Date: 20071123
  Transmission Date: 20080405
  Serious: Yes (Death, Life-Threatening, Hospitalization, Other)
  Sender: FDA-Public Use
  Company Number: GB-JNJFOC-20071006757

PATIENT
  Sex: Female
  Weight: 68 kg

DRUGS (5)
  1. INFLIXIMAB [Suspect]
     Indication: RHEUMATOID ARTHRITIS
     Route: 042
  2. METHOTREXATE [Concomitant]
  3. CO-PROXAMOL [Concomitant]
  4. FOLIC ACID [Concomitant]
  5. MELOXICAM [Concomitant]

REACTIONS (4)
  - MYOCARDIAL ISCHAEMIA [None]
  - RENAL FAILURE ACUTE [None]
  - SEPSIS [None]
  - URINARY TRACT INFECTION [None]
